FAERS Safety Report 5041200-X (Version None)
Quarter: 2006Q3

REPORT INFORMATION
  Report Type: 
  Country: None (occurrence: None)
  Receive Date: 20060703
  Receipt Date: 20060629
  Transmission Date: 20061208
  Serious: Yes (Death)
  Sender: FDA-Public Use
  Company Number: BR-GLAXOSMITHKLINE-A0610922A

PATIENT

DRUGS (1)
  1. LAMOTRIGINE [Suspect]

REACTIONS (2)
  - DEATH [None]
  - RASH [None]
